FAERS Safety Report 22045987 (Version 2)
Quarter: 2023Q1

REPORT INFORMATION
  Report Type: Spontaneous
  Country: FR (occurrence: FR)
  Receive Date: 20230228
  Receipt Date: 20230308
  Transmission Date: 20230417
  Serious: Yes (Hospitalization)
  Sender: FDA-Public Use
  Company Number: None

PATIENT
  Age: 88 Year
  Sex: Female
  Weight: 53.4 kg

DRUGS (16)
  1. CARBOPLATIN [Suspect]
     Active Substance: CARBOPLATIN
     Indication: Renal cancer
     Dosage: 126.5 MILLIGRAM, 1 TOTAL
     Route: 042
     Dates: start: 20221118, end: 20221118
  2. CARBOPLATIN [Suspect]
     Active Substance: CARBOPLATIN
     Dosage: 132 MILLIGRAM, 1 TOTAL
     Route: 042
     Dates: start: 20221128, end: 20221128
  3. CARBOPLATIN [Suspect]
     Active Substance: CARBOPLATIN
     Dosage: 136.5 MILLIGRAM, 1 TOTAL
     Route: 042
     Dates: start: 20221212, end: 20221212
  4. CARBOPLATIN [Suspect]
     Active Substance: CARBOPLATIN
     Dosage: 122.5 MILLIGRAM, 1 TOTAL
     Route: 042
     Dates: start: 20221219, end: 20221219
  5. CARBOPLATIN [Suspect]
     Active Substance: CARBOPLATIN
     Dosage: 121.5 MILLIGRAM, 1 TOTAL
     Route: 042
     Dates: start: 20230102, end: 20230102
  6. CARBOPLATIN [Suspect]
     Active Substance: CARBOPLATIN
     Dosage: 140 MILLIGRAM, 1 TOTAL
     Route: 042
     Dates: start: 20230109, end: 20230109
  7. CARBOPLATIN [Suspect]
     Active Substance: CARBOPLATIN
     Dosage: 130 MILLIGRAM, 1 TOTAL
     Route: 042
     Dates: start: 20230123, end: 20230123
  8. CARBOPLATIN [Suspect]
     Active Substance: CARBOPLATIN
     Dosage: 132 MILLIGRAM, 1 TOTAL
     Route: 042
     Dates: start: 20230130, end: 20230130
  9. GEMCITABINE [Suspect]
     Active Substance: GEMCITABINE
     Indication: Renal cancer
     Dosage: 1264 MILLIGRAM, 1 TOTAL
     Route: 042
     Dates: start: 20221118, end: 20221118
  10. GEMCITABINE [Suspect]
     Active Substance: GEMCITABINE
     Dosage: 1264 MILLIGRAM, 1 TOTAL
     Route: 042
     Dates: start: 20221128, end: 20221128
  11. GEMCITABINE [Suspect]
     Active Substance: GEMCITABINE
     Dosage: 1264 MILLIGRAM, 1 TOTAL
     Route: 042
     Dates: start: 20221212, end: 20221212
  12. GEMCITABINE [Suspect]
     Active Substance: GEMCITABINE
     Dosage: 1256 MILLIGRAM, 1 TOTAL
     Route: 042
     Dates: start: 20221219, end: 20221219
  13. GEMCITABINE [Suspect]
     Active Substance: GEMCITABINE
     Dosage: 1248 MILLIGRAM, 1 TOTAL
     Route: 042
     Dates: start: 20230102, end: 20230102
  14. GEMCITABINE [Suspect]
     Active Substance: GEMCITABINE
     Dosage: 1248 MILLIGRAM,1 TOTAL
     Route: 042
     Dates: start: 20230109, end: 20230109
  15. GEMCITABINE [Suspect]
     Active Substance: GEMCITABINE
     Dosage: 1272 MILLIGRAM, 1 TOTAL
     Route: 042
     Dates: start: 20230123, end: 20230123
  16. GEMCITABINE [Suspect]
     Active Substance: GEMCITABINE
     Dosage: 1272 MILLIGRAM, 1 TOTAL
     Route: 042
     Dates: start: 20230130, end: 20230130

REACTIONS (1)
  - Ischaemic stroke [Not Recovered/Not Resolved]

NARRATIVE: CASE EVENT DATE: 20230131
